FAERS Safety Report 9060171 (Version 4)
Quarter: 2013Q2

REPORT INFORMATION
  Report Type: Report from Study
  Country: US (occurrence: US)
  Receive Date: 20130212
  Receipt Date: 20130529
  Transmission Date: 20140414
  Serious: Yes (Death, Hospitalization)
  Sender: FDA-Public Use
  Company Number: US-ACTELION-A-NJ2013-78993

PATIENT
  Age: 60 Year
  Sex: Female

DRUGS (3)
  1. TRACLEER [Suspect]
     Indication: PULMONARY ARTERIAL HYPERTENSION
     Dosage: UNK
     Route: 048
     Dates: end: 2013
  2. FLOLAN [Concomitant]
  3. SILDENAFIL [Concomitant]

REACTIONS (5)
  - Death [Fatal]
  - Grand mal convulsion [Unknown]
  - Mechanical ventilation [Unknown]
  - Pneumonia [Unknown]
  - Hypoxia [Unknown]
